FAERS Safety Report 25683342 (Version 1)
Quarter: 2025Q3

REPORT INFORMATION
  Report Type: Spontaneous
  Country: US (occurrence: US)
  Receive Date: 20250814
  Receipt Date: 20250814
  Transmission Date: 20251020
  Serious: Yes (Other)
  Sender: PURDUE
  Company Number: US-PURDUE-USA-2025-0319746

PATIENT
  Age: 46 Year
  Sex: Male

DRUGS (2)
  1. DEXTROAMPHETAMINE SACCHARATE, AMPHETAMINE ASPARTATE, DEXTROAMPHETAMINE [Suspect]
     Active Substance: AMPHETAMINE ASPARTATE\AMPHETAMINE SULFATE\DEXTROAMPHETAMINE SACCHARATE\DEXTROAMPHETAMINE SULFATE
     Indication: Product used for unknown indication
     Route: 048
  2. FENTANYL [Suspect]
     Active Substance: FENTANYL
     Indication: Product used for unknown indication
     Route: 065

REACTIONS (7)
  - Impaired driving ability [Unknown]
  - Loss of consciousness [Unknown]
  - Drug abuse [Unknown]
  - Drug diversion [Unknown]
  - Mydriasis [Unknown]
  - Balance disorder [Unknown]
  - Drug screen positive [Unknown]

NARRATIVE: CASE EVENT DATE: 20250601
